FAERS Safety Report 10574683 (Version 2)
Quarter: 2014Q4

REPORT INFORMATION
  Report Type: Spontaneous
  Country: US (occurrence: US)
  Receive Date: 20141110
  Receipt Date: 20141216
  Transmission Date: 20150529
  Serious: Yes (Hospitalization)
  Sender: FDA-Public Use
  Company Number: US-PFIZER INC-2014307327

PATIENT
  Age: 66 Year
  Sex: Female

DRUGS (4)
  1. GEODON [Suspect]
     Active Substance: ZIPRASIDONE HYDROCHLORIDE\ZIPRASIDONE MESYLATE
     Dosage: 40MG AT BREAKFAST AND LUNCH 80MG 2@BED TIME
     Dates: start: 2014, end: 2014
  2. GEODON [Suspect]
     Active Substance: ZIPRASIDONE HYDROCHLORIDE\ZIPRASIDONE MESYLATE
     Dosage: 80 MG, DAILY
     Dates: start: 2014, end: 2014
  3. GEODON [Suspect]
     Active Substance: ZIPRASIDONE HYDROCHLORIDE\ZIPRASIDONE MESYLATE
     Indication: ANXIETY
     Dosage: 40MG AT BREAKFAST AND LUNCH AND 160 MG AT BEDTIME
     Dates: start: 2014, end: 2014
  4. NARDIL [Concomitant]
     Active Substance: PHENELZINE SULFATE
     Dosage: 15 MG, 6 PER DAY

REACTIONS (5)
  - Cardiac failure congestive [Recovered/Resolved]
  - Anxiety [Recovered/Resolved]
  - Crying [Recovered/Resolved]
  - Activities of daily living impaired [Recovered/Resolved]
  - Depression [Recovered/Resolved]

NARRATIVE: CASE EVENT DATE: 2014
